FAERS Safety Report 9775724 (Version 1)
Quarter: 2013Q4

REPORT INFORMATION
  Report Type: Spontaneous
  Country: US (occurrence: US)
  Receive Date: 20131220
  Receipt Date: 20131220
  Transmission Date: 20140711
  Serious: Yes (Other)
  Sender: FDA-Public Use
  Company Number: US-BRISTOL-MYERS SQUIBB COMPANY-19934041

PATIENT
  Age: 60 Year
  Sex: Female
  Weight: 176.87 kg

DRUGS (5)
  1. WARFARIN SODIUM [Suspect]
     Dates: start: 20131207
  2. LEVOTHYROXINE [Concomitant]
  3. SIMVASTATIN [Concomitant]
  4. SERTRALINE [Concomitant]
  5. METOPROLOL [Concomitant]

REACTIONS (2)
  - Splenectomy [Unknown]
  - Vaginal haemorrhage [Unknown]
